FAERS Safety Report 8409956-3 (Version None)
Quarter: 2012Q2

REPORT INFORMATION
  Report Type: 
  Country: None (occurrence: None)
  Receive Date: 20120605
  Receipt Date: 20120525
  Transmission Date: 20120825
  Serious: Yes (Other)
  Sender: FDA-Public Use
  Company Number: US-BRISTOL-MYERS SQUIBB COMPANY-16396319

PATIENT
  Age: 82 Year
  Sex: Female
  Weight: 56 kg

DRUGS (2)
  1. ORENCIA [Suspect]
     Indication: RHEUMATOID ARTHRITIS
     Dosage: LAST INFUSION :AUGUST/2011
     Route: 042
     Dates: start: 20080201
  2. PREDNISONE [Concomitant]
     Dosage: 10 MG EVERY OTHER DAY

REACTIONS (7)
  - ANAEMIA [None]
  - GLAUCOMA [None]
  - PAIN IN EXTREMITY [None]
  - HYPERTENSION [None]
  - COUGH [None]
  - RHEUMATOID NODULE [None]
  - OEDEMA PERIPHERAL [None]
